FAERS Safety Report 6810396-9 (Version None)
Quarter: 2010Q2

REPORT INFORMATION
  Report Type: 
  Country: None (occurrence: None)
  Receive Date: 20100630
  Receipt Date: 20100616
  Transmission Date: 20101027
  Serious: Yes (Other)
  Sender: FDA-Public Use
  Company Number: PHHY2010JP39617

PATIENT
  Sex: Female

DRUGS (13)
  1. DIOVAN [Suspect]
     Indication: HYPERTENSION
     Dosage: 40 MG, QD
     Route: 048
     Dates: start: 20070912, end: 20071012
  2. DIOVAN [Suspect]
     Dosage: 80 MG, QD
     Dates: start: 20071013
  3. LASIX [Suspect]
     Dosage: 20 MG, UNK
     Route: 048
     Dates: start: 20070520
  4. ADALAT CC [Concomitant]
     Indication: HYPERTENSION
     Dosage: 20 MG, UNK
     Route: 048
     Dates: start: 20070120
  5. ADALAT CC [Concomitant]
     Dosage: 40 MG, UNK
     Route: 048
  6. ADALAT CC [Concomitant]
     Dosage: 20 MG, UNK
     Route: 048
  7. SILECE [Concomitant]
     Dosage: 2 MG, UNK
     Route: 048
     Dates: start: 20071212
  8. SG [Concomitant]
     Dosage: 2 G, UNK
     Route: 048
     Dates: start: 20040604
  9. PARIET [Concomitant]
     Dosage: 10 MG, UNK
     Route: 048
     Dates: start: 20041002
  10. LAXOBERON [Concomitant]
     Dosage: 3 DF, UNK
     Route: 048
     Dates: start: 20081004, end: 20090802
  11. ADETPHOS [Concomitant]
     Dosage: 300 MG, UNK
     Route: 048
     Dates: start: 20061011
  12. ALOSENN [Concomitant]
     Dosage: 0.5 G, UNK
     Route: 048
     Dates: start: 20090803
  13. ALLEGRA [Concomitant]
     Dosage: 120 MG, UNK
     Route: 048
     Dates: start: 20090616

REACTIONS (1)
  - HYPERURICAEMIA [None]
